FAERS Safety Report 5945072-8 (Version None)
Quarter: 2008Q4

REPORT INFORMATION
  Report Type: 
  Country: None (occurrence: None)
  Receive Date: 20081107
  Receipt Date: 20081103
  Transmission Date: 20090506
  Serious: Yes (Other)
  Sender: FDA-Public Use
  Company Number: US-ASTRAZENECA-2008UW24661

PATIENT
  Age: 17 Year

DRUGS (1)
  1. SEROQUEL [Suspect]
     Dosage: POSSIBLE SEROQUEL OVERDOSE
     Route: 048
     Dates: start: 20081008

REACTIONS (4)
  - ACCIDENTAL OVERDOSE [None]
  - INTENTIONAL DRUG MISUSE [None]
  - MALAISE [None]
  - WRONG DRUG ADMINISTERED [None]
